FAERS Safety Report 5905747-3 (Version None)
Quarter: 2008Q4

REPORT INFORMATION
  Report Type: 
  Country: None (occurrence: None)
  Receive Date: 20081002
  Receipt Date: 20080919
  Transmission Date: 20090506
  Serious: Yes (Death)
  Sender: FDA-Public Use
  Company Number: JP-ABBOTT-08P-087-0479231-00

PATIENT
  Age: 71 Year
  Sex: Male

DRUGS (14)
  1. LEUPROLIDE ACETATE [Suspect]
     Indication: PROSTATE CANCER STAGE II
     Route: 058
     Dates: start: 20060428, end: 20070622
  2. BICALUTAMIDE [Concomitant]
     Indication: PROSTATE CANCER STAGE II
     Route: 048
     Dates: start: 20060421, end: 20070105
  3. URSODEOXYCHOLIC ACID [Concomitant]
     Indication: HEPATITIS C VIRUS TEST
     Route: 048
  4. URSODEOXYCHOLIC ACID [Concomitant]
     Indication: HEPATIC CIRRHOSIS
  5. MOSAPRIDE CITRATE [Concomitant]
     Indication: HEPATITIS C VIRUS TEST
     Route: 048
  6. MOSAPRIDE CITRATE [Concomitant]
     Indication: HEPATIC CIRRHOSIS
  7. MOSAPRIDE CITRATE [Concomitant]
     Indication: GASTRITIS
  8. UNICELLASE [Concomitant]
     Indication: HEPATITIS C VIRUS TEST
     Route: 048
  9. UNICELLASE [Concomitant]
     Indication: HEPATIC CIRRHOSIS
  10. NATEGLINIDE [Concomitant]
     Indication: DIABETES MELLITUS
     Route: 048
  11. OMEPRAZOLE [Concomitant]
     Indication: GASTRITIS
     Route: 048
  12. FUROSEMIDE [Concomitant]
     Indication: ASCITES
     Route: 048
     Dates: end: 20070911
  13. FUROSEMIDE [Concomitant]
     Indication: HEPATITIS C VIRUS TEST
  14. FUROSEMIDE [Concomitant]
     Indication: HEPATIC CIRRHOSIS

REACTIONS (1)
  - HEPATIC FAILURE [None]
